FAERS Safety Report 9584261 (Version 1)
Quarter: 2013Q4

REPORT INFORMATION
  Report Type: Spontaneous
  Country: US (occurrence: US)
  Receive Date: 20131002
  Receipt Date: 20131002
  Transmission Date: 20140711
  Serious: No
  Sender: FDA-Public Use
  Company Number: US-AMGEN-USASP2013052369

PATIENT
  Age: 55 Year
  Sex: Female
  Weight: 34.01 kg

DRUGS (5)
  1. ENBREL [Suspect]
     Indication: PRODUCT USED FOR UNKNOWN INDICATION
     Dosage: 50 MG, ON MONDAY AND THURSDAY
     Route: 058
  2. OMEPRAZOLE [Concomitant]
     Dosage: 20 MG, UNK
  3. LISINOPRIL [Concomitant]
     Dosage: 10 MG, UNK
  4. EFFEXOR XR [Concomitant]
     Dosage: 150 MG, UNK
  5. TYLENOL                            /00020001/ [Concomitant]
     Dosage: 325 MG, UNK

REACTIONS (1)
  - Headache [Unknown]
